FAERS Safety Report 5615129-X (Version None)
Quarter: 2008Q1

REPORT INFORMATION
  Report Type: 
  Country: None (occurrence: None)
  Receive Date: 20080206
  Receipt Date: 20070619
  Transmission Date: 20080703
  Serious: No
  Sender: FDA-Public Use
  Company Number: A0658264A

PATIENT
  Age: 31 Year
  Sex: Female
  Weight: 109.1 kg

DRUGS (9)
  1. ARIXTRA [Suspect]
     Dosage: 10MG PER DAY
     Route: 058
     Dates: start: 20070615, end: 20070616
  2. PROAMATINE [Concomitant]
  3. FERROUS SULFATE TAB [Concomitant]
  4. VERAPAMIL [Concomitant]
  5. LEVOTHYROXINE SODIUM [Concomitant]
  6. CALCIUM GLUCONATE [Concomitant]
  7. DIGOXIN [Concomitant]
  8. ZINC [Concomitant]
  9. ALLOPURINOL [Concomitant]

REACTIONS (5)
  - EPISTAXIS [None]
  - HEADACHE [None]
  - NAUSEA [None]
  - PYREXIA [None]
  - VOMITING [None]
